FAERS Safety Report 9521142 (Version 1)
Quarter: 2013Q1

REPORT INFORMATION
  Report Type: Spontaneous
  Country: US (occurrence: None)
  Receive Date: 20130305
  Receipt Date: 20130305
  Transmission Date: 20140127
  Serious: Yes (Other)
  Sender: FDA-Public Use
  Company Number: 163-21880-12080134

PATIENT
  Age: 68 Year
  Sex: Male

DRUGS (6)
  1. REVLIMID (LENALIDOMIDE) (CAPSULES) [Suspect]
     Indication: MYELODYSPLASTIC SYNDROME
     Dosage: 10 MG, 20 IN 20 D, PO
     Route: 048
     Dates: start: 20111202
  2. LASIX (FUROSEMIDE) (UNKNOWN) [Concomitant]
  3. POTASSIUM CHLORIDE (POTASSIUM CHLORIDE) (UNKNOWN) [Concomitant]
  4. EXJADE (DEFERASIROX) (UNKNOWN) [Concomitant]
  5. LOVENOX (HEPARIN-FRACTION, SODIUM SALT) (UNKNOWN) [Concomitant]
  6. ASPIRIN (ACETYLSALICYLIC ACID) (UNKNOWN) (ACETYLSALICYLIC ACID) [Concomitant]

REACTIONS (4)
  - Neutrophil count decreased [None]
  - White blood cell count decreased [None]
  - Platelet count decreased [None]
  - Monocyte count decreased [None]
